FAERS Safety Report 15547976 (Version 3)
Quarter: 2019Q2

REPORT INFORMATION
  Report Type: Report from Study
  Country: BR (occurrence: BR)
  Receive Date: 20181024
  Receipt Date: 20190425
  Transmission Date: 20190711
  Serious: Yes (Hospitalization)
  Sender: FDA-Public Use
  Company Number: BR-BIOGEN-2015BI119109

PATIENT
  Age: 33 Year
  Sex: Female

DRUGS (2)
  1. SOLU-MEDROL [Suspect]
     Active Substance: METHYLPREDNISOLONE SODIUM SUCCINATE
     Indication: PRODUCT USED FOR UNKNOWN INDICATION
     Route: 065
  2. AVONEX [Suspect]
     Active Substance: INTERFERON BETA-1A
     Indication: MULTIPLE SCLEROSIS
     Route: 050
     Dates: start: 201412, end: 201502

REACTIONS (4)
  - Amnesia [Recovered/Resolved]
  - Hemiparesis [Unknown]
  - Drug-induced liver injury [Recovered/Resolved]
  - Loss of control of legs [Unknown]

NARRATIVE: CASE EVENT DATE: 201503
